FAERS Safety Report 15881909 (Version 3)
Quarter: 2019Q1

REPORT INFORMATION
  Report Type: Report from Study
  Country: US (occurrence: US)
  Receive Date: 20190128
  Receipt Date: 20190327
  Transmission Date: 20190417
  Serious: No
  Sender: FDA-Public Use
  Company Number: PHEH2019US003961

PATIENT
  Sex: Female
  Weight: 68.4 kg

DRUGS (2)
  1. COSENTYX [Suspect]
     Active Substance: SECUKINUMAB
     Indication: PSORIATIC ARTHROPATHY
  2. COSENTYX [Suspect]
     Active Substance: SECUKINUMAB
     Indication: JUVENILE PSORIATIC ARTHRITIS
     Dosage: 150 MG, QMO
     Route: 058
     Dates: start: 201810

REACTIONS (4)
  - Product use in unapproved indication [Unknown]
  - Influenza [Unknown]
  - Nasopharyngitis [Unknown]
  - Bronchitis [Unknown]
